FAERS Safety Report 8508294-8 (Version None)
Quarter: 2012Q3

REPORT INFORMATION
  Report Type: 
  Country: None (occurrence: None)
  Receive Date: 20120713
  Receipt Date: 20120702
  Transmission Date: 20120928
  Serious: Yes (Congenital Anomaly)
  Sender: FDA-Public Use
  Company Number: MX-TEVA-346531ISR

PATIENT
  Sex: Male

DRUGS (3)
  1. CYCLOPHOSPHAMIDE [Suspect]
     Dosage: TWO DOSES OF 1.4 G/M2 ON 11 DEC 2002 AND 11 JAN 2003, RESPECTIVELY
     Route: 064
     Dates: start: 20021111, end: 20030111
  2. PREDNISONE [Concomitant]
     Indication: GLOMERULONEPHRITIS
     Route: 064
  3. CYCLOPHOSPHAMIDE [Suspect]
     Indication: GLOMERULONEPHRITIS
     Dosage: ONE DOSE OF 1 G/M2 GIVEN ON 11 NOV 2002
     Route: 064
     Dates: start: 20021111, end: 20030111

REACTIONS (10)
  - CRYPTORCHISM [None]
  - CONGENITAL HAND MALFORMATION [None]
  - HYPOSPADIAS [None]
  - CONGENITAL RENAL DISORDER [None]
  - FOETAL EXPOSURE DURING PREGNANCY [None]
  - FOETAL GROWTH RESTRICTION [None]
  - CONDUCTIVE DEAFNESS [None]
  - MULTIPLE CONGENITAL ABNORMALITIES [None]
  - KLIPPEL-FEIL SYNDROME [None]
  - DYSMORPHISM [None]
